FAERS Safety Report 5810915-5 (Version None)
Quarter: 2008Q3

REPORT INFORMATION
  Report Type: 
  Country: None (occurrence: None)
  Receive Date: 20080716
  Receipt Date: 20080704
  Transmission Date: 20090109
  Serious: Yes (Hospitalization)
  Sender: FDA-Public Use
  Company Number: PHHY2008SE08084

PATIENT

DRUGS (16)
  1. TOBI [Suspect]
     Indication: PSEUDOMONAS INFECTION
     Dosage: 300 MG X 2
     Dates: start: 20080421, end: 20080508
  2. SANDIMMUNE [Suspect]
     Dosage: 100 MG, UNK
     Dates: start: 20071201
  3. FURIX [Suspect]
     Dosage: 40 MG, UNK
     Dates: start: 20071201
  4. ZOLOFT [Concomitant]
     Dosage: 25 MG, UNK
  5. SYMBICORT [Concomitant]
  6. INSULATARD [Concomitant]
  7. SIMVASTATIN [Concomitant]
  8. ACETAMINOPHEN [Concomitant]
  9. BACTRIM [Concomitant]
     Dosage: 400 MG/80 MG
  10. KALEORID [Concomitant]
     Dosage: 750 MG, UNK
  11. PREDNISOLONE [Concomitant]
     Dosage: 5 MG, UNK
  12. NATRIUMBIKARBONAT [Concomitant]
     Dosage: 1 G, UNK
  13. GAVISCON [Concomitant]
  14. IMOVANE [Concomitant]
     Dosage: 5 MG, UNK
  15. CELLCEPT [Concomitant]
     Dosage: 500 MG, UNK
  16. PANTOPRAZOLE SODIUM [Concomitant]
     Dosage: 40 MG, UNK

REACTIONS (2)
  - BLOOD CREATININE INCREASED [None]
  - RENAL DISORDER [None]
